FAERS Safety Report 14567320 (Version 2)
Quarter: 2018Q3

REPORT INFORMATION
  Report Type: Spontaneous
  Country: IT (occurrence: IT)
  Receive Date: 20180223
  Receipt Date: 20180712
  Transmission Date: 20181010
  Serious: Yes (Other)
  Sender: FDA-Public Use
  Company Number: IT-PFIZER INC-2018075811

PATIENT
  Age: 53 Year
  Sex: Female

DRUGS (4)
  1. TORVAST [Concomitant]
     Active Substance: ATORVASTATIN
     Dosage: UNK
  2. XANAX [Suspect]
     Active Substance: ALPRAZOLAM
     Indication: DRUG ABUSE
     Dosage: 12 MG, TOTAL
     Route: 048
     Dates: start: 20171115, end: 20171115
  3. MODURETIC 5?50 [Concomitant]
     Active Substance: AMILORIDE HYDROCHLORIDE\HYDROCHLOROTHIAZIDE
     Dosage: UNK
  4. SERTRALINE [Concomitant]
     Active Substance: SERTRALINE HYDROCHLORIDE
     Dosage: 50 MG, UNK

REACTIONS (3)
  - Overdose [Unknown]
  - Drug abuse [Recovering/Resolving]
  - Depression [Recovering/Resolving]

NARRATIVE: CASE EVENT DATE: 20171115
